FAERS Safety Report 14269812 (Version 1)
Quarter: 2017Q4

REPORT INFORMATION
  Report Type: Spontaneous
  Country: US (occurrence: US)
  Receive Date: 20171211
  Receipt Date: 20171211
  Transmission Date: 20180321
  Serious: Yes (Hospitalization, Other)
  Sender: FDA-Public Use
  Company Number: US-OTSUKA-2016_004965

PATIENT

DRUGS (1)
  1. ABILIFY [Suspect]
     Active Substance: ARIPIPRAZOLE
     Indication: NEUROPSYCHIATRIC SYMPTOMS
     Dosage: 2 MG, UNK
     Route: 065

REACTIONS (3)
  - Off label use [Unknown]
  - Aggression [Unknown]
  - Hospitalisation [Unknown]
